FAERS Safety Report 17331539 (Version 1)
Quarter: 2020Q1

REPORT INFORMATION
  Report Type: Spontaneous
  Country: US (occurrence: US)
  Receive Date: 20200128
  Receipt Date: 20200128
  Transmission Date: 20200409
  Serious: Yes (Other)
  Sender: FDA-Public Use
  Company Number: US-RECORDATI RARE DISEASES-2079477

PATIENT
  Age: 3 Year

DRUGS (2)
  1. CYSTADANE [Suspect]
     Active Substance: BETAINE
     Indication: PRODUCT USED FOR UNKNOWN INDICATION
  2. CYSTADANE [Suspect]
     Active Substance: BETAINE

REACTIONS (4)
  - Product odour abnormal [Unknown]
  - Drug ineffective [Unknown]
  - Poor quality product administered [Unknown]
  - Blood homocysteine increased [Unknown]

NARRATIVE: CASE EVENT DATE: 2019
